FAERS Safety Report 7208183-5 (Version None)
Quarter: 2011Q1

REPORT INFORMATION
  Report Type: 
  Country: None (occurrence: None)
  Receive Date: 20110104
  Receipt Date: 20101216
  Transmission Date: 20110831
  Serious: Yes (Other)
  Sender: FDA-Public Use
  Company Number: US-BAYER-200943227NA

PATIENT
  Sex: Female

DRUGS (3)
  1. YAZ [Suspect]
     Indication: PRODUCT USED FOR UNKNOWN INDICATION
     Dosage: UNK
     Dates: start: 20060101, end: 20080601
  2. LEVOXYL [Concomitant]
  3. CARAFATE [Concomitant]

REACTIONS (3)
  - PAIN [None]
  - METRORRHAGIA [None]
  - GALLBLADDER DISORDER [None]
